FAERS Safety Report 18068510 (Version 1)
Quarter: 2020Q3

REPORT INFORMATION
  Report Type: Spontaneous
  Country: US (occurrence: US)
  Receive Date: 20200724
  Receipt Date: 20200724
  Transmission Date: 20201103
  Serious: Yes (Other)
  Sender: FDA-Public Use
  Company Number: US-ELI_LILLY_AND_COMPANY-US202007006437

PATIENT
  Age: 72 Year
  Sex: Female

DRUGS (1)
  1. TRULICITY [Suspect]
     Active Substance: DULAGLUTIDE
     Indication: PRODUCT USED FOR UNKNOWN INDICATION
     Dosage: 1.5 MG, UNKNOWN
     Route: 065

REACTIONS (8)
  - Gait disturbance [Unknown]
  - Lung disorder [Unknown]
  - Fat tissue increased [Unknown]
  - Hypoaesthesia [Unknown]
  - Fall [Unknown]
  - Insomnia [Unknown]
  - Formication [Unknown]
  - Mobility decreased [Unknown]

NARRATIVE: CASE EVENT DATE: 202001
